FAERS Safety Report 13239056 (Version 3)
Quarter: 2017Q1

REPORT INFORMATION
  Report Type: Spontaneous
  Country: IE (occurrence: IE)
  Receive Date: 20170216
  Receipt Date: 20170315
  Transmission Date: 20170428
  Serious: Yes (Other)
  Sender: FDA-Public Use
  Company Number: IE-JNJFOC-20170207066

PATIENT
  Age: 32 Year
  Sex: Male

DRUGS (1)
  1. STELARA [Suspect]
     Active Substance: USTEKINUMAB
     Indication: NETHERTON^S SYNDROME
     Route: 058
     Dates: start: 20170203

REACTIONS (5)
  - Joint swelling [Not Recovered/Not Resolved]
  - Product use issue [Unknown]
  - Netherton^s syndrome [Not Recovered/Not Resolved]
  - Off label use [Unknown]
  - Lymphadenopathy [Not Recovered/Not Resolved]

NARRATIVE: CASE EVENT DATE: 201702
